FAERS Safety Report 22198658 (Version 11)
Quarter: 2023Q4

REPORT INFORMATION
  Report Type: Report from Study
  Country: US (occurrence: US)
  Receive Date: 20230411
  Receipt Date: 20231006
  Transmission Date: 20240110
  Serious: Yes (Hospitalization, Other)
  Sender: FDA-Public Use
  Company Number: US-JAZZ-2022-US-025467

PATIENT
  Sex: Female

DRUGS (19)
  1. XYREM [Suspect]
     Active Substance: SODIUM OXYBATE
     Indication: Narcolepsy
     Dosage: 4.5 GRAM, BID
  2. XYREM [Suspect]
     Active Substance: SODIUM OXYBATE
     Indication: Somnolence
     Dosage: 10 GRAM NIGHTLY
  3. XYREM [Suspect]
     Active Substance: SODIUM OXYBATE
     Dosage: 5.5G AT BEDTIME THEN 4.5G 2.5 TO 4 HOURS LATER
  4. XYREM [Suspect]
     Active Substance: SODIUM OXYBATE
     Dosage: 5 GRAM, BID
  5. XYREM [Suspect]
     Active Substance: SODIUM OXYBATE
     Dosage: 5.5G AT BEDTIME THEN 4.5G 2.5 TO 4 HOURS LATER
  6. XYREM [Suspect]
     Active Substance: SODIUM OXYBATE
     Dosage: 4 GRAM TWICE NIGHTLY
  7. XYREM [Suspect]
     Active Substance: SODIUM OXYBATE
     Dosage: 5.5G AT BEDTIME THEN 4.5G 2.5 TO 4 HOURS LATER
  8. XYREM [Suspect]
     Active Substance: SODIUM OXYBATE
     Dosage: 5.5G AT BEDTIME THEN 4.5G 2.5 TO 4 HOURS LATER
  9. BUPROPION HYDROCHLORIDE [Concomitant]
     Active Substance: BUPROPION HYDROCHLORIDE
     Indication: Product used for unknown indication
     Dosage: UNK
     Dates: start: 20170201
  10. SPRINTEC [Concomitant]
     Active Substance: ETHINYL ESTRADIOL\NORGESTIMATE
     Indication: Product used for unknown indication
     Dosage: UNK
     Dates: start: 20140101
  11. CLONAZEPAM [Concomitant]
     Active Substance: CLONAZEPAM
     Indication: Product used for unknown indication
     Dosage: UNK
     Dates: start: 20160929
  12. ARMODAFINIL [Concomitant]
     Active Substance: ARMODAFINIL
     Indication: Product used for unknown indication
     Dosage: UNK
     Dates: start: 20181001
  13. SUNOSI [Concomitant]
     Active Substance: SOLRIAMFETOL
     Indication: Product used for unknown indication
     Dosage: UNK
     Dates: start: 20191017
  14. TESTOSTERONE CYPIONATE [Concomitant]
     Active Substance: TESTOSTERONE CYPIONATE
     Indication: Product used for unknown indication
     Dosage: UNK
     Dates: start: 20190514
  15. BUPROPION [Concomitant]
     Active Substance: BUPROPION
     Indication: Product used for unknown indication
     Dosage: UNK
     Dates: start: 20170201
  16. TESTOSTERONE [Concomitant]
     Active Substance: TESTOSTERONE
     Indication: Product used for unknown indication
     Dosage: UNK
     Dates: start: 20190514
  17. ZIPRASIDONE [Concomitant]
     Active Substance: ZIPRASIDONE
     Indication: Product used for unknown indication
     Dosage: UNK
     Dates: start: 20200217
  18. VIIBRYD [Concomitant]
     Active Substance: VILAZODONE HYDROCHLORIDE
     Indication: Product used for unknown indication
     Dosage: UNK
     Dates: start: 20220223
  19. GEODON [Concomitant]
     Active Substance: ZIPRASIDONE HYDROCHLORIDE\ZIPRASIDONE MESYLATE
     Indication: Product used for unknown indication
     Dosage: UNK

REACTIONS (14)
  - Surgery [Unknown]
  - Victim of crime [Recovered/Resolved]
  - Presyncope [Recovered/Resolved]
  - COVID-19 [Unknown]
  - Drug tolerance [Unknown]
  - Drug ineffective [Unknown]
  - Prescribed overdose [Unknown]
  - Incorrect dose administered [Unknown]
  - Intentional product use issue [Unknown]
  - Overdose [Unknown]
  - Intentional product use issue [Unknown]
  - Product container seal issue [Unknown]
  - Product administration interrupted [Unknown]
  - Product storage error [Unknown]
